FAERS Safety Report 10261986 (Version 2)
Quarter: 2014Q3

REPORT INFORMATION
  Report Type: Report from Study
  Country: US (occurrence: US)
  Receive Date: 20140626
  Receipt Date: 20140711
  Transmission Date: 20150326
  Serious: Yes (Hospitalization, Other)
  Sender: FDA-Public Use
  Company Number: US-ABBVIE-14P-163-1250319-00

PATIENT
  Sex: Male
  Weight: 90.8 kg

DRUGS (1)
  1. HUMIRA [Suspect]
     Active Substance: ADALIMUMAB
     Indication: RHEUMATOID ARTHRITIS
     Dates: start: 2004, end: 2008

REACTIONS (9)
  - Aortic valve disease [Recovered/Resolved]
  - Major depression [Recovered/Resolved]
  - Catatonia [Recovered/Resolved]
  - Arthralgia [Recovered/Resolved]
  - Atrial fibrillation [Recovered/Resolved]
  - Dupuytren^s contracture [Recovered/Resolved]
  - Arthralgia [Not Recovered/Not Resolved]
  - Coronary artery occlusion [Recovered/Resolved]
  - Arthritis [Recovered/Resolved]

NARRATIVE: CASE EVENT DATE: 2005
